FAERS Safety Report 14357331 (Version 3)
Quarter: 2018Q4

REPORT INFORMATION
  Report Type: Report from Study
  Country: US (occurrence: US)
  Receive Date: 20180105
  Receipt Date: 20181017
  Transmission Date: 20190204
  Serious: No
  Sender: FDA-Public Use
  Company Number: US-AMGEN-USASL2017180822

PATIENT
  Age: 78 Year
  Sex: Female

DRUGS (1)
  1. REPATHA [Suspect]
     Active Substance: EVOLOCUMAB
     Indication: HYPERCHOLESTEROLAEMIA
     Dosage: 420 MG, QMO
     Route: 065

REACTIONS (1)
  - Injection site swelling [Recovered/Resolved]

NARRATIVE: CASE EVENT DATE: 201706
